FAERS Safety Report 13272789 (Version 2)
Quarter: 2017Q2

REPORT INFORMATION
  Report Type: Spontaneous
  Country: LB (occurrence: LB)
  Receive Date: 20170227
  Receipt Date: 20170425
  Transmission Date: 20170830
  Serious: Yes (Death, Other)
  Sender: FDA-Public Use
  Company Number: LB-CELGENEUS-LBN-2017024998

PATIENT

DRUGS (3)
  1. CYCLOSPORINE A [Concomitant]
     Active Substance: CYCLOSPORINE
     Indication: PROPHYLAXIS AGAINST GRAFT VERSUS HOST DISEASE
     Route: 065
  2. AZACITIDINE. [Suspect]
     Active Substance: AZACITIDINE
     Indication: PRODUCT USED FOR UNKNOWN INDICATION
     Dosage: 32 MG/M2
     Route: 058
  3. AZACITIDINE. [Suspect]
     Active Substance: AZACITIDINE
     Dosage: 75 MG/M2
     Route: 058

REACTIONS (15)
  - Disease progression [Fatal]
  - Neuropathy peripheral [Unknown]
  - Acute graft versus host disease [Unknown]
  - Cholestatic liver injury [Unknown]
  - Hepatitis [Unknown]
  - Diarrhoea [Unknown]
  - Bacterial infection [Unknown]
  - Cystitis haemorrhagic [Unknown]
  - Myocardial infarction [Fatal]
  - Vision blurred [Unknown]
  - Pneumonia [Unknown]
  - Chronic graft versus host disease [Unknown]
  - Neutropenia [Unknown]
  - Progressive multifocal leukoencephalopathy [Fatal]
  - Cytomegalovirus infection [Fatal]
